FAERS Safety Report 7347523-3 (Version None)
Quarter: 2011Q1

REPORT INFORMATION
  Report Type: 
  Country: None (occurrence: None)
  Receive Date: 20110311
  Receipt Date: 20110301
  Transmission Date: 20110831
  Serious: Yes (Other)
  Sender: FDA-Public Use
  Company Number: JP-JNJFOC-20110301739

PATIENT

DRUGS (1)
  1. INFLIXIMAB, RECOMBINANT [Suspect]
     Indication: UVEITIS
     Dosage: WEEKS 0, 2, + 6 THEN EVERY 8 WEEKS
     Route: 042

REACTIONS (1)
  - CYTOMEGALOVIRUS INFECTION [None]
